FAERS Safety Report 4993365-3 (Version None)
Quarter: 2006Q2

REPORT INFORMATION
  Report Type: 
  Country: None (occurrence: None)
  Receive Date: 20060503
  Receipt Date: 20060503
  Transmission Date: 20061013
  Serious: Yes (Hospitalization)
  Sender: FDA-Public Use
  Company Number: None

PATIENT
  Sex: Male

DRUGS (8)
  1. CETUXIMAB (400MG/M2) [Suspect]
     Indication: OESOPHAGEAL CARCINOMA
     Dosage: 400 ONCE IV
     Route: 042
     Dates: start: 20060207
  2. CETUXIMAB (250 MG/M2) [Suspect]
     Indication: OESOPHAGEAL CARCINOMA
     Dosage: 250 WEEKLY IV
     Route: 042
     Dates: start: 20060214, end: 20060321
  3. LOVENOX [Concomitant]
  4. PROTONIX [Concomitant]
  5. REGLAN [Concomitant]
  6. PROCARDIA XL [Concomitant]
  7. ACTOS [Concomitant]
  8. RESTORIL [Concomitant]

REACTIONS (9)
  - ABDOMINAL PAIN UPPER [None]
  - ANAEMIA [None]
  - AZOTAEMIA [None]
  - COAGULOPATHY [None]
  - DEEP VEIN THROMBOSIS [None]
  - FATIGUE [None]
  - FLANK PAIN [None]
  - HYPOTENSION [None]
  - INJECTION SITE HAEMORRHAGE [None]
